FAERS Safety Report 10437239 (Version 1)
Quarter: 2014Q3

REPORT INFORMATION
  Report Type: Spontaneous
  Country: US (occurrence: US)
  Receive Date: 20140908
  Receipt Date: 20140908
  Transmission Date: 20150326
  Serious: No
  Sender: FDA-Public Use
  Company Number: US-BRISTOL-MYERS SQUIBB COMPANY-20908000

PATIENT
  Age: 65 Year
  Sex: Female

DRUGS (3)
  1. PERCOCET [Suspect]
     Active Substance: ACETAMINOPHEN\OXYCODONE HYDROCHLORIDE
  2. METHADONE [Concomitant]
     Active Substance: METHADONE HYDROCHLORIDE
  3. ABILIFY [Suspect]
     Active Substance: ARIPIPRAZOLE
     Dates: start: 20131126

REACTIONS (5)
  - Insomnia [Unknown]
  - Muscle twitching [Unknown]
  - Dyskinesia [Unknown]
  - Weight decreased [Unknown]
  - Night sweats [Unknown]

NARRATIVE: CASE EVENT DATE: 201312
